FAERS Safety Report 26161144 (Version 1)
Quarter: 2025Q4

REPORT INFORMATION
  Report Type: Spontaneous
  Country: KW (occurrence: KW)
  Receive Date: 20251216
  Receipt Date: 20251216
  Transmission Date: 20260117
  Serious: Yes (Other)
  Sender: ALIMERA
  Company Number: KW-ALIMERA SCIENCES B.V.-KW-A16013-25-000407

PATIENT
  Age: 69 Year
  Sex: Female

DRUGS (1)
  1. ILUVIEN [Suspect]
     Active Substance: FLUOCINOLONE ACETONIDE
     Indication: Diabetic retinal oedema
     Dosage: 0.25 MICROGRAM, QD - BOTH EYES
     Route: 031
     Dates: start: 20251207, end: 20251207

REACTIONS (5)
  - Eye haemorrhage [Unknown]
  - Eye pain [Unknown]
  - Ocular hyperaemia [Unknown]
  - Needle issue [Unknown]
  - Device difficult to use [Unknown]

NARRATIVE: CASE EVENT DATE: 20251207
